FAERS Safety Report 17996099 (Version 4)
Quarter: 2020Q3

REPORT INFORMATION
  Report Type: Spontaneous
  Country: US (occurrence: US)
  Receive Date: 20200708
  Receipt Date: 20200902
  Transmission Date: 20201103
  Serious: Yes (Hospitalization, Other)
  Sender: FDA-Public Use
  Company Number: US-ASTRAZENECA-2020SE83842

PATIENT
  Sex: Male
  Weight: 90.7 kg

DRUGS (2)
  1. SYMBICORT [Suspect]
     Active Substance: BUDESONIDE\FORMOTEROL FUMARATE DIHYDRATE
     Indication: CHRONIC OBSTRUCTIVE PULMONARY DISEASE
     Dosage: PMDI 160/4.5MCG, TWO PUFFS, TWICE DAILY
     Route: 055
     Dates: start: 2017
  2. ALBUTEROL AND IPRATROPIUM BROMIDE [Concomitant]
     Indication: CHRONIC OBSTRUCTIVE PULMONARY DISEASE
     Dosage: THREE TIMES A DAY
     Route: 055
     Dates: start: 2018

REACTIONS (7)
  - Intentional device misuse [Unknown]
  - Cough [Unknown]
  - Device delivery system issue [Unknown]
  - Dyspnoea [Unknown]
  - Wrong technique in device usage process [Unknown]
  - Incorrect dose administered by device [Unknown]
  - Weight fluctuation [Unknown]
